FAERS Safety Report 12892514 (Version 1)
Quarter: 2016Q4

REPORT INFORMATION
  Report Type: Spontaneous
  Country: US (occurrence: US)
  Receive Date: 20161027
  Receipt Date: 20161027
  Transmission Date: 20170207
  Serious: Yes (Hospitalization)
  Sender: FDA-Public Use
  Company Number: None

PATIENT
  Sex: Female
  Weight: 109 kg

DRUGS (4)
  1. MERCAPTOPURINE. [Suspect]
     Active Substance: MERCAPTOPURINE
     Dates: end: 20161016
  2. CYTARABINE. [Suspect]
     Active Substance: CYTARABINE
     Dates: end: 20161013
  3. CYCLOPHOSPHAMIDE. [Suspect]
     Active Substance: CYCLOPHOSPHAMIDE
     Dates: end: 20161003
  4. METHOTREXATE. [Suspect]
     Active Substance: METHOTREXATE
     Dates: end: 20161024

REACTIONS (8)
  - Nausea [None]
  - Chills [None]
  - Mobility decreased [None]
  - Fatigue [None]
  - Headache [None]
  - Body temperature increased [None]
  - Unevaluable event [None]
  - Myalgia [None]

NARRATIVE: CASE EVENT DATE: 20161025
